FAERS Safety Report 10983499 (Version 1)
Quarter: 2015Q2

REPORT INFORMATION
  Report Type: Spontaneous
  Country: US (occurrence: US)
  Receive Date: 20150403
  Receipt Date: 20150403
  Transmission Date: 20150821
  Serious: Yes (Hospitalization, Other)
  Sender: FDA-Public Use
  Company Number: US-PERRIGO-15US003394

PATIENT
  Age: 5 Month
  Sex: Female

DRUGS (2)
  1. ACETAMINOPHEN CHERRY 32 MG/ML 161 [Suspect]
     Active Substance: ACETAMINOPHEN
     Indication: TEETHING
     Dosage: UNKNOWN, SINGLE
     Route: 048
     Dates: start: 201310, end: 201310
  2. ACETAMINOPHEN CHERRY 32 MG/ML 161 [Suspect]
     Active Substance: ACETAMINOPHEN
     Indication: PYREXIA

REACTIONS (4)
  - Infantile spasms [Recovered/Resolved]
  - Gross motor delay [Recovered/Resolved]
  - Drug administered to patient of inappropriate age [Recovered/Resolved]
  - Fine motor delay [Recovered/Resolved]

NARRATIVE: CASE EVENT DATE: 201310
